FAERS Safety Report 12842803 (Version 12)
Quarter: 2022Q1

REPORT INFORMATION
  Report Type: Spontaneous
  Country: US (occurrence: US)
  Receive Date: 20161013
  Receipt Date: 20220104
  Transmission Date: 20220423
  Serious: No
  Sender: FDA-Public Use
  Company Number: US-PFIZER INC-2016476318

PATIENT
  Age: 9 Year
  Sex: Female

DRUGS (5)
  1. GENOTROPIN [Suspect]
     Active Substance: SOMATROPIN
     Indication: Blood growth hormone
     Dosage: 3.4 MG, DAILY
     Dates: start: 20160811
  2. GENOTROPIN [Suspect]
     Active Substance: SOMATROPIN
     Indication: Turner^s syndrome
     Dosage: 2 MG, DAILY
     Dates: start: 20160909
  3. GENOTROPIN [Suspect]
     Active Substance: SOMATROPIN
     Dosage: 4 MG, DAILY
     Dates: start: 20161009
  4. GENOTROPIN [Suspect]
     Active Substance: SOMATROPIN
     Dosage: 4 MG, 1X/DAY (INJECTED BY NEEDLE ONCE AT NIGHT)
     Dates: start: 2017
  5. GENOTROPIN [Suspect]
     Active Substance: SOMATROPIN
     Dosage: 4 MG, DAILY (7 DAYS A WEEK)
     Dates: start: 20170528

REACTIONS (4)
  - Drug dose omission by device [Unknown]
  - Device malfunction [Unknown]
  - Device leakage [Unknown]
  - Headache [Unknown]

NARRATIVE: CASE EVENT DATE: 20161010
